FAERS Safety Report 8149548-7 (Version None)
Quarter: 2012Q1

REPORT INFORMATION
  Report Type: 
  Country: None (occurrence: None)
  Receive Date: 20120218
  Receipt Date: 20120105
  Transmission Date: 20120608
  Serious: No
  Sender: FDA-Public Use
  Company Number: US-ALLERGAN-1114358US

PATIENT
  Age: 45 Year
  Sex: Female
  Weight: 54.875 kg

DRUGS (1)
  1. BOTOX COSMETIC [Suspect]
     Indication: SKIN WRINKLING
     Dosage: 25 UNITS, SINGLE 5 EACH CROWS FEET AND 15 TO BROWS
     Route: 030
     Dates: start: 20111020, end: 20111020

REACTIONS (3)
  - PERIORBITAL OEDEMA [None]
  - EYE SWELLING [None]
  - CONTUSION [None]
